FAERS Safety Report 11040078 (Version 1)
Quarter: 2015Q2

REPORT INFORMATION
  Report Type: Report from Study
  Country: US (occurrence: US)
  Receive Date: 20150416
  Receipt Date: 20150416
  Transmission Date: 20150821
  Serious: Yes (Other)
  Sender: FDA-Public Use
  Company Number: US-TEVA-554807USA

PATIENT
  Age: 81 Year

DRUGS (2)
  1. TREANDA [Suspect]
     Active Substance: BENDAMUSTINE HYDROCHLORIDE
     Indication: CHRONIC LYMPHOCYTIC LEUKAEMIA
     Dosage: 1 ADN 2 Q 28 DAYS
     Route: 042
     Dates: start: 20121126, end: 20130109
  2. RITUXAN [Suspect]
     Active Substance: RITUXIMAB
     Dosage: ONCE
     Route: 042
     Dates: start: 20130109, end: 20130109

REACTIONS (1)
  - Respiratory distress [Unknown]

NARRATIVE: CASE EVENT DATE: 20130109
